FAERS Safety Report 12092109 (Version 1)
Quarter: 2016Q1

REPORT INFORMATION
  Report Type: Spontaneous
  Country: US (occurrence: US)
  Receive Date: 20160219
  Receipt Date: 20160219
  Transmission Date: 20160526
  Serious: No
  Sender: FDA-Public Use
  Company Number: US-009507513-1602USA008905

PATIENT
  Sex: Female

DRUGS (3)
  1. COZAAR [Suspect]
     Active Substance: LOSARTAN POTASSIUM
     Dosage: SPLIT 25 MG PILLS IN ORDER TO TAKE A 12.5 MG DOSE
     Route: 048
     Dates: start: 2014, end: 2014
  2. ATACAND [Suspect]
     Active Substance: CANDESARTAN CILEXETIL
     Route: 048
  3. COZAAR [Suspect]
     Active Substance: LOSARTAN POTASSIUM
     Dosage: SPLIT 25 MG PILLS IN ORDER TO TAKE A 12.5 MG DOSE
     Route: 048
     Dates: start: 2004, end: 2014

REACTIONS (5)
  - Pain in extremity [Unknown]
  - Wrong technique in product usage process [Unknown]
  - Back pain [Unknown]
  - Pain in extremity [Recovered/Resolved]
  - Back pain [Recovered/Resolved]

NARRATIVE: CASE EVENT DATE: 2004
